FAERS Safety Report 13641876 (Version 2)
Quarter: 2017Q3

REPORT INFORMATION
  Report Type: Spontaneous
  Country: US (occurrence: US)
  Receive Date: 20170612
  Receipt Date: 20170720
  Transmission Date: 20171127
  Serious: No
  Sender: FDA-Public Use
  Company Number: US-PFIZER INC-2017253821

PATIENT
  Age: 44 Year
  Sex: Male
  Weight: 120 kg

DRUGS (1)
  1. ADVIL [Suspect]
     Active Substance: IBUPROFEN
     Indication: HEADACHE
     Dosage: 2 DF, AS NEEDED

REACTIONS (5)
  - Poor quality drug administered [Unknown]
  - Product leakage [Unknown]
  - Dysgeusia [Unknown]
  - Product physical issue [Unknown]
  - Product taste abnormal [Unknown]

NARRATIVE: CASE EVENT DATE: 201705
